FAERS Safety Report 5316743-1 (Version None)
Quarter: 2007Q2

REPORT INFORMATION
  Report Type: 
  Country: None (occurrence: None)
  Receive Date: 20070504
  Receipt Date: 20070502
  Transmission Date: 20071010
  Serious: Yes (Other)
  Sender: FDA-Public Use
  Company Number: GB-BRISTOL-MYERS SQUIBB COMPANY-13768718

PATIENT
  Age: 68 Year
  Sex: Male
  Weight: 85 kg

DRUGS (7)
  1. IRBESARTAN [Suspect]
     Route: 048
     Dates: start: 20050201
  2. YENTREVE [Interacting]
     Route: 048
     Dates: start: 20060620
  3. ASPIRIN [Concomitant]
     Route: 048
     Dates: start: 20011203
  4. ISOSORBIDE MONONITRATE [Concomitant]
     Route: 048
     Dates: start: 20050125
  5. NICORANDIL [Concomitant]
     Route: 048
     Dates: start: 20050720
  6. PANTOPRAZOLE [Concomitant]
     Route: 048
     Dates: start: 20051219
  7. RAMIPRIL [Concomitant]
     Route: 048
     Dates: start: 20041208

REACTIONS (3)
  - DIZZINESS [None]
  - DRUG INTERACTION [None]
  - HYPOTENSION [None]
